FAERS Safety Report 4415562-8 (Version None)
Quarter: 2004Q3

REPORT INFORMATION
  Report Type: 
  Country: None (occurrence: None)
  Receive Date: 20040804
  Receipt Date: 20030929
  Transmission Date: 20050211
  Serious: Yes (Disabling)
  Sender: FDA-Public Use
  Company Number: US-MERCK-0310USA00134

PATIENT
  Age: 73 Year
  Sex: Female
  Weight: 136 kg

DRUGS (7)
  1. [THERAPY UNSPECIFIED] [Concomitant]
     Route: 065
  2. LORTAB [Concomitant]
     Route: 065
  3. PRINIVIL [Concomitant]
     Route: 065
  4. K-DUR 10 [Concomitant]
     Route: 065
  5. VIOXX [Suspect]
     Indication: ARTHRITIS
     Route: 048
     Dates: start: 20000101, end: 20020101
  6. VIOXX [Suspect]
     Indication: PAIN
     Route: 048
     Dates: start: 20000101, end: 20020101
  7. COUMADIN [Concomitant]
     Route: 065

REACTIONS (8)
  - CARDIAC DISORDER [None]
  - CHEST PAIN [None]
  - DEPRESSION [None]
  - DIZZINESS [None]
  - FREQUENT BOWEL MOVEMENTS [None]
  - HYPERTENSION [None]
  - KIDNEY INFECTION [None]
  - NAUSEA [None]
